FAERS Safety Report 20925163 (Version 8)
Quarter: 2022Q3

REPORT INFORMATION
  Report Type: Report from Study
  Country: CA (occurrence: CA)
  Receive Date: 20220607
  Receipt Date: 20220929
  Transmission Date: 20221027
  Serious: Yes (Hospitalization, Other)
  Sender: FDA-Public Use
  Company Number: CA-Taiho Oncology Inc-EU-2022-01133

PATIENT
  Age: 69 Year
  Sex: Female
  Weight: 72 kg

DRUGS (1)
  1. LONSURF [Suspect]
     Active Substance: TIPIRACIL HYDROCHLORIDE\TRIFLURIDINE
     Indication: Colorectal cancer metastatic
     Dosage: CYCLE UNKNOWN
     Route: 048
     Dates: start: 20220203

REACTIONS (10)
  - Lower limb fracture [Unknown]
  - Wound [Recovered/Resolved]
  - Intestinal obstruction [Unknown]
  - Transfusion [Unknown]
  - Malaise [Unknown]
  - COVID-19 [Unknown]
  - Abdominal abscess [Unknown]
  - Fall [Unknown]
  - Cytopenia [Unknown]
  - Neutropenia [Unknown]

NARRATIVE: CASE EVENT DATE: 20220601
